FAERS Safety Report 13156178 (Version 1)
Quarter: 2017Q1

REPORT INFORMATION
  Report Type: Spontaneous
  Country: US (occurrence: US)
  Receive Date: 20170126
  Receipt Date: 20170126
  Transmission Date: 20170428
  Serious: Yes (Other)
  Sender: FDA-Public Use
  Company Number: US-PURDUE-USA-2017-0136105

PATIENT
  Age: 77 Year
  Sex: Female

DRUGS (2)
  1. OXYCODONE/ ACETAMINOPHEN TABLETS [Suspect]
     Active Substance: ACETAMINOPHEN\OXYCODONE HYDROCHLORIDE
     Indication: PAIN
     Dosage: 10/325 MG, Q24H
     Route: 048
  2. OXYCODONE/ ACETAMINOPHEN TABLETS [Suspect]
     Active Substance: ACETAMINOPHEN\OXYCODONE HYDROCHLORIDE
     Dosage: 10/325MG, PRN (NO MORE THAN 3 TABLETS IN 24 HOURS)
     Route: 048

REACTIONS (5)
  - Change of bowel habit [Recovered/Resolved]
  - Fall [Unknown]
  - Pain [Unknown]
  - Pneumonia viral [Unknown]
  - Malaise [Unknown]

NARRATIVE: CASE EVENT DATE: 201701
